FAERS Safety Report 9086212 (Version 1)
Quarter: 2013Q1

REPORT INFORMATION
  Report Type: Report from Study
  Country: US (occurrence: US)
  Receive Date: 20130131
  Receipt Date: 20130131
  Transmission Date: 20140127
  Serious: No
  Sender: FDA-Public Use
  Company Number: US-ABBOTT-12P-163-1015048-00

PATIENT
  Sex: Female
  Weight: 57.66 kg

DRUGS (2)
  1. HUMIRA [Suspect]
     Indication: CROHN^S DISEASE
     Dates: start: 20120912
  2. UNKNOWN MEDICATION (NON-ABBOTT) [Concomitant]
     Indication: BLOOD PRESSURE

REACTIONS (1)
  - Rectal haemorrhage [Not Recovered/Not Resolved]
